FAERS Safety Report 6905877-3 (Version None)
Quarter: 2010Q3

REPORT INFORMATION
  Report Type: 
  Country: None (occurrence: None)
  Receive Date: 20100803
  Receipt Date: 20100803
  Transmission Date: 20110219
  Serious: No
  Sender: FDA-Public Use
  Company Number: None

PATIENT
  Age: 48 Year
  Sex: Female
  Weight: 90.7194 kg

DRUGS (2)
  1. PREVACID [Suspect]
     Indication: GASTRITIS
     Dosage: 30 MG 1 PO DAILY
     Route: 048
     Dates: start: 20090901
  2. PREVACID [Suspect]
     Indication: GASTROOESOPHAGEAL REFLUX DISEASE
     Dosage: 30 MG 1 PO DAILY
     Route: 048
     Dates: start: 20090901

REACTIONS (1)
  - DRUG INEFFECTIVE [None]
